FAERS Safety Report 19172105 (Version 1)
Quarter: 2021Q2

REPORT INFORMATION
  Report Type: Report from Study
  Country: US (occurrence: US)
  Receive Date: 20210423
  Receipt Date: 20210423
  Transmission Date: 20210717
  Serious: Yes (Death, Other)
  Sender: FDA-Public Use
  Company Number: US-ACADIA PHARMACEUTICALS INC.-ACA-2021-PIM-001159

PATIENT
  Age: 77 Year
  Sex: Female

DRUGS (15)
  1. RIVASTIGMINE. [Concomitant]
     Active Substance: RIVASTIGMINE
  2. AMIODARONE [Concomitant]
     Active Substance: AMIODARONE
  3. GABAPENTIN. [Concomitant]
     Active Substance: GABAPENTIN
  4. MYRBETRIQ [Concomitant]
     Active Substance: MIRABEGRON
  5. NUPLAZID [Suspect]
     Active Substance: PIMAVANSERIN TARTRATE
     Indication: PARKINSON^S DISEASE
     Dosage: 34 MILLIGRAM, QD
     Route: 048
     Dates: start: 20200811, end: 20210327
  6. ALBUTEROL HFA [Concomitant]
     Active Substance: ALBUTEROL SULFATE
  7. DULOXETINE. [Concomitant]
     Active Substance: DULOXETINE
  8. MEMANTINE. [Concomitant]
     Active Substance: MEMANTINE
  9. CARVEDILOL. [Concomitant]
     Active Substance: CARVEDILOL
  10. SPIRONOLACTONE. [Concomitant]
     Active Substance: SPIRONOLACTONE
  11. XARELTO [Concomitant]
     Active Substance: RIVAROXABAN
  12. NUPLAZID [Suspect]
     Active Substance: PIMAVANSERIN TARTRATE
     Indication: HALLUCINATION
  13. PLAVIX [Concomitant]
     Active Substance: CLOPIDOGREL BISULFATE
  14. ISOSORBIDE MONONITRATE. [Concomitant]
     Active Substance: ISOSORBIDE MONONITRATE
  15. FUROSEMIDE. [Concomitant]
     Active Substance: FUROSEMIDE

REACTIONS (1)
  - Death [Recovered/Resolved]

NARRATIVE: CASE EVENT DATE: 20210327
